FAERS Safety Report 7190574-2 (Version None)
Quarter: 2010Q4

REPORT INFORMATION
  Report Type: 
  Country: None (occurrence: None)
  Receive Date: 20101223
  Receipt Date: 20101214
  Transmission Date: 20110411
  Serious: Yes (Other)
  Sender: FDA-Public Use
  Company Number: US-JNJFOC-20101205495

PATIENT
  Sex: Male
  Weight: 97.07 kg

DRUGS (2)
  1. REMICADE [Suspect]
     Indication: PSORIATIC ARTHROPATHY
     Route: 042
  2. AMIODARONE HCL [Concomitant]
     Indication: CARDIAC DISORDER

REACTIONS (1)
  - ARRHYTHMIA [None]
